FAERS Safety Report 8888708 (Version 4)
Quarter: 2012Q4

REPORT INFORMATION
  Report Type: 
  Country: US (occurrence: US)
  Receive Date: 20121106
  Receipt Date: 20121221
  Transmission Date: 20130627
  Serious: No
  Sender: FDA-Public Use
  Company Number: US-PFIZER INC-2010085566

PATIENT
  Age: 62 Year
  Sex: Female
  Weight: 109 kg

DRUGS (15)
  1. XALATAN [Suspect]
     Indication: GLAUCOMA
     Dosage: 1 Gtt, 1x/day, in each eye
     Dates: start: 2006
  2. XALATAN [Suspect]
     Dosage: 1 Gtt, daily
     Route: 047
  3. XALATAN [Suspect]
     Dosage: 1 Gtt, one drop in each eye, 2x/day
     Route: 047
     Dates: start: 200711
  4. LATANOPROST [Suspect]
     Indication: GLAUCOMA
     Dosage: UNK
  5. LUMIGAN [Suspect]
     Indication: GLAUCOMA
     Dosage: UNK
  6. SYSTANE [Concomitant]
     Dosage: UNK, 2x/day
  7. DIGOXIN [Concomitant]
     Indication: HEART DISORDER
     Dosage: 0.025 mg, daily
  8. VERAPAMIL [Concomitant]
     Indication: HEART DISORDER
     Dosage: 180 mg, daily
  9. HYDROCHLOROTHIAZIDE [Concomitant]
     Indication: HEART DISORDER
     Dosage: 12.5 mg, daily
  10. POTASSIUM [Concomitant]
     Dosage: 10 mg, 1x/day
  11. RELAFEN [Concomitant]
     Dosage: 750 mg, 2x/day
  12. DARVOCET [Concomitant]
     Dosage: 100 mg, 1x/day
  13. OCUVITE [Concomitant]
     Dosage: UNK
  14. VITAMIN B12 [Concomitant]
     Dosage: 1000 mg, 1x/day
  15. VITAMIN E [Concomitant]
     Dosage: 400 mg, 1x/day

REACTIONS (6)
  - Expired drug administered [Unknown]
  - Product quality issue [Unknown]
  - Off label use [Unknown]
  - Eye pruritus [Unknown]
  - Eye swelling [Unknown]
  - Ocular hyperaemia [Unknown]
